FAERS Safety Report 5415669-2 (Version None)
Quarter: 2007Q3

REPORT INFORMATION
  Report Type: 
  Country: None (occurrence: None)
  Receive Date: 20070815
  Receipt Date: 20070124
  Transmission Date: 20080115
  Serious: No
  Sender: FDA-Public Use
  Company Number: US-BRISTOL-MYERS SQUIBB COMPANY-13643374

PATIENT
  Sex: Female

DRUGS (1)
  1. TEQUIN [Suspect]
     Route: 048
     Dates: start: 20070112, end: 20070114

REACTIONS (9)
  - BLADDER DISCOMFORT [None]
  - CHROMATURIA [None]
  - DIZZINESS [None]
  - DRUG INTERACTION [None]
  - DYSPNOEA [None]
  - FAECES DISCOLOURED [None]
  - MUSCLE SPASMS [None]
  - PARAESTHESIA [None]
  - VULVOVAGINAL DISCOMFORT [None]
